FAERS Safety Report 20886372 (Version 13)
Quarter: 2023Q4

REPORT INFORMATION
  Report Type: Report from Study
  Country: NL (occurrence: NL)
  Receive Date: 20220527
  Receipt Date: 20231030
  Transmission Date: 20240109
  Serious: Yes (Life-Threatening, Hospitalization)
  Sender: FDA-Public Use
  Company Number: NL-GILEAD-2022-0581411

PATIENT
  Age: 73 Year
  Sex: Male
  Weight: 70 kg

DRUGS (69)
  1. BREXUCABTAGENE AUTOLEUCEL [Suspect]
     Active Substance: BREXUCABTAGENE AUTOLEUCEL
     Indication: Mantle cell lymphoma recurrent
     Dosage: ^68^
     Route: 042
     Dates: start: 20220504, end: 20220504
  2. FLUDARABINE [Suspect]
     Active Substance: FLUDARABINE PHOSPHATE
     Indication: Bone marrow conditioning regimen
     Dosage: 60
     Route: 042
     Dates: start: 20220429, end: 20220429
  3. FLUDARABINE [Suspect]
     Active Substance: FLUDARABINE PHOSPHATE
     Dosage: 60
     Route: 042
     Dates: start: 20220430, end: 20220430
  4. FLUDARABINE [Suspect]
     Active Substance: FLUDARABINE PHOSPHATE
     Dosage: 60
     Route: 042
     Dates: start: 20220501, end: 20220501
  5. CYCLOPHOSPHAMIDE [Suspect]
     Active Substance: CYCLOPHOSPHAMIDE
     Indication: Bone marrow conditioning regimen
     Dosage: 1000
     Route: 042
     Dates: start: 20220429, end: 20220429
  6. CYCLOPHOSPHAMIDE [Suspect]
     Active Substance: CYCLOPHOSPHAMIDE
     Dosage: 1000
     Route: 042
     Dates: start: 20220430, end: 20220430
  7. CYCLOPHOSPHAMIDE [Suspect]
     Active Substance: CYCLOPHOSPHAMIDE
     Dosage: 1000
     Route: 042
     Dates: start: 20220501, end: 20220501
  8. DEXAMETHASONE [Suspect]
     Active Substance: DEXAMETHASONE
     Indication: Product used for unknown indication
     Dosage: 40
     Route: 065
     Dates: start: 20220405, end: 20220408
  9. VALACYCLOVIR HYDROCHLORIDE [Concomitant]
     Active Substance: VALACYCLOVIR HYDROCHLORIDE
     Dosage: UNK
     Dates: start: 20220428
  10. VALACYCLOVIR HYDROCHLORIDE [Concomitant]
     Active Substance: VALACYCLOVIR HYDROCHLORIDE
     Dosage: 500,MG,TWICE DAILY
     Route: 048
     Dates: start: 20220428, end: 20220516
  11. SULFAMETHOXAZOLE\TRIMETHOPRIM [Concomitant]
     Active Substance: SULFAMETHOXAZOLE\TRIMETHOPRIM
     Dosage: UNK
     Dates: start: 20220429
  12. SULFAMETHOXAZOLE\TRIMETHOPRIM [Concomitant]
     Active Substance: SULFAMETHOXAZOLE\TRIMETHOPRIM
     Dosage: 480,MG,DAILY
     Route: 042
     Dates: start: 20220516
  13. SULFAMETHOXAZOLE\TRIMETHOPRIM [Concomitant]
     Active Substance: SULFAMETHOXAZOLE\TRIMETHOPRIM
     Dosage: 480,MG,DAILY
     Route: 042
     Dates: start: 20220516, end: 20220520
  14. HEPARIN SODIUM [Concomitant]
     Active Substance: HEPARIN SODIUM
     Dosage: UNK
     Dates: start: 20220429
  15. NADROPARIN [Concomitant]
     Active Substance: NADROPARIN
     Dosage: UNK
     Dates: start: 20220429
  16. NADROPARIN [Concomitant]
     Active Substance: NADROPARIN
     Dosage: 2850,OTHER,DAILY
     Route: 058
     Dates: start: 20220429, end: 20220607
  17. CHLORHEXIDINE [Concomitant]
     Active Substance: CHLORHEXIDINE\CHLORHEXIDINE GLUCONATE
     Dosage: UNK
     Dates: start: 20220502
  18. SODIUM CHLORIDE [Concomitant]
     Active Substance: SODIUM CHLORIDE
  19. OXYCODONE [Concomitant]
     Active Substance: OXYCODONE
     Dosage: UNK
     Dates: start: 20220502
  20. CIPROFLOXACIN [Concomitant]
     Active Substance: CIPROFLOXACIN
     Dosage: UNK
     Dates: start: 20220506
  21. CIPROFLOXACIN [Concomitant]
     Active Substance: CIPROFLOXACIN
     Dosage: 500,MG,TWICE DAILY
     Route: 048
     Dates: start: 20220506, end: 20220515
  22. METOCLOPRAMIDE [Concomitant]
     Active Substance: METOCLOPRAMIDE
     Dosage: 10,MG,OTHER
     Route: 048
     Dates: start: 20220428, end: 20220507
  23. METOCLOPRAMIDE [Concomitant]
     Active Substance: METOCLOPRAMIDE
     Dosage: 10,MG,THREE TIMES DAILY
     Route: 048
     Dates: start: 20220507, end: 20220513
  24. POLYETHYLENE GLYCOLS [Concomitant]
     Active Substance: POLYETHYLENE GLYCOLS
     Dosage: UNK
     Dates: start: 20220508
  25. ACETAMINOPHEN [Concomitant]
     Active Substance: ACETAMINOPHEN
     Dosage: 1000,MG,OTHER
     Route: 048
     Dates: start: 20220508, end: 20220520
  26. ACETAMINOPHEN [Concomitant]
     Active Substance: ACETAMINOPHEN
     Dosage: 1000,MG,DAILY
     Route: 042
     Dates: start: 20220511, end: 20220511
  27. NYSTATIN [Concomitant]
     Active Substance: NYSTATIN
     Dosage: UNK
     Dates: start: 20220509
  28. PIPERACILLIN AND TAZOBACTAM [Concomitant]
     Active Substance: PIPERACILLIN SODIUM\TAZOBACTAM SODIUM
     Dosage: UNK
     Dates: start: 20220509
  29. AMIODARONE [Concomitant]
     Active Substance: AMIODARONE
     Dosage: UNK
     Dates: start: 20220510, end: 20220511
  30. NOREPINEPHRINE [Concomitant]
     Active Substance: NOREPINEPHRINE
     Dosage: UNK
     Dates: start: 20220510, end: 20220512
  31. MAGNESIUM SULFATE [Concomitant]
     Active Substance: MAGNESIUM SULFATE\MAGNESIUM SULFATE HEPTAHYDRATE
     Dosage: 2000,MG,DAILY
     Route: 042
     Dates: start: 20220511, end: 20220512
  32. METOPROLOL [Concomitant]
     Active Substance: METOPROLOL
     Dosage: 50,MG,TWICE DAILY
     Route: 048
     Dates: start: 20220511, end: 20220521
  33. METOPROLOL [Concomitant]
     Active Substance: METOPROLOL
     Dosage: 25,MG,TWICE DAILY
     Route: 048
     Dates: start: 20220521, end: 20220523
  34. METOPROLOL [Concomitant]
     Active Substance: METOPROLOL
     Dosage: 12.5,MG,TWICE DAILY
     Route: 048
     Dates: start: 20220523, end: 20220603
  35. DOCUSATE SODIUM;SORBITOL [Concomitant]
  36. HALDOL [Concomitant]
     Active Substance: HALOPERIDOL
     Dosage: 5,MG,THREE TIMES DAILY
     Route: 042
     Dates: start: 20220411, end: 20220413
  37. TOCILIZUMAB [Concomitant]
     Active Substance: TOCILIZUMAB
     Dosage: 600,MG,ONCE
     Route: 042
     Dates: start: 20220505, end: 20220506
  38. TOCILIZUMAB [Concomitant]
     Active Substance: TOCILIZUMAB
     Dosage: 600,MG,ONCE
     Route: 042
     Dates: start: 20220505, end: 20220505
  39. TOCILIZUMAB [Concomitant]
     Active Substance: TOCILIZUMAB
     Dosage: 600,MG,TWICE DAILY
     Route: 042
     Dates: start: 20220510, end: 20220510
  40. TOCILIZUMAB [Concomitant]
     Active Substance: TOCILIZUMAB
     Dosage: 600,MG,ONCE
     Route: 042
     Dates: start: 20220511, end: 20220511
  41. DEXAMETHASONE [Concomitant]
     Active Substance: DEXAMETHASONE
     Dosage: 10,MG,ONCE
     Route: 042
     Dates: start: 20220505, end: 20220506
  42. MOVICOLON [Concomitant]
     Active Substance: POLYETHYLENE GLYCOL 3350\POTASSIUM CHLORIDE\SODIUM BICARBONATE\SODIUM CHLORIDE
     Dosage: UNKNOWN,OTHER,TWICE DAILY
     Route: 048
     Dates: start: 20220330, end: 20220810
  43. HEPARIN [Concomitant]
     Active Substance: HEPARIN SODIUM
     Dosage: 2,ML,DAILY
     Route: 042
     Dates: start: 20220330, end: 20220510
  44. COTRIMOXAZOLE [Concomitant]
     Active Substance: SULFAMETHOXAZOLE\TRIMETHOPRIM
     Dosage: 80/400,MG,DAILY
     Route: 048
     Dates: start: 20220404, end: 20220422
  45. ALLOPURINOL [Concomitant]
     Active Substance: ALLOPURINOL
     Dosage: 300,MG,DAILY
     Route: 048
     Dates: start: 20220429, end: 20220507
  46. ALLOPURINOL [Concomitant]
     Active Substance: ALLOPURINOL
     Dosage: 300,MG,DAILY
     Route: 048
     Dates: start: 20220404, end: 20220414
  47. RASBURICASE [Concomitant]
     Active Substance: RASBURICASE
     Dosage: 3,MG,DAILY
     Route: 042
     Dates: start: 20220429, end: 20220429
  48. OXYCODONE [Concomitant]
     Active Substance: OXYCODONE
     Dosage: 5,MG,OTHER
     Route: 048
     Dates: start: 20220502, end: 20220513
  49. SODIUM CHLORIDE [Concomitant]
     Active Substance: SODIUM CHLORIDE
     Dosage: 18,OTHER,CONTINUOUS
     Route: 042
     Dates: start: 20220510, end: 20220513
  50. FLUCONAZOLE [Concomitant]
     Active Substance: FLUCONAZOLE
     Dosage: 200,MG,DAILY
     Route: 048
     Dates: start: 20220506, end: 20220507
  51. FLUCONAZOLE [Concomitant]
     Active Substance: FLUCONAZOLE
     Dosage: 400,MG,DAILY
     Route: 048
     Dates: start: 20220518, end: 20220518
  52. HALOPERIDOL [Concomitant]
     Active Substance: HALOPERIDOL
     Dosage: 2,5,MG,THREE TIMES DAILY
     Route: 042
     Dates: start: 20220511, end: 20220513
  53. METHYLPREDNISOLONE [Concomitant]
     Active Substance: METHYLPREDNISOLONE
     Dosage: 1000,MG,TWICE DAILY
     Route: 042
     Dates: start: 20220513, end: 20220515
  54. METHYLPREDNISOLONE [Concomitant]
     Active Substance: METHYLPREDNISOLONE
     Dosage: 1000,MG,DAILY
     Route: 042
     Dates: start: 20220516, end: 20220523
  55. INSULIN ASPART [Concomitant]
     Active Substance: INSULIN ASPART
     Dosage: 100,OTHER,OTHER
     Route: 058
     Dates: start: 20220516, end: 20220529
  56. ZOPICLONE [Concomitant]
     Active Substance: ZOPICLONE
     Dosage: 3.75,MG,OTHER
     Route: 048
     Dates: start: 20220516, end: 20220516
  57. ACYCLOVIR [Concomitant]
     Active Substance: ACYCLOVIR
     Dosage: 5.09,MG/KG,TWICE DAILY
     Route: 042
     Dates: start: 20220516, end: 20220520
  58. CALCIUM GLUCONATE [Concomitant]
     Active Substance: CALCIUM GLUCONATE
     Dosage: 1000,MG,DAILY
     Route: 042
     Dates: start: 20220530, end: 20220531
  59. CHOLECALCIFEROL [Concomitant]
     Active Substance: CHOLECALCIFEROL
     Dosage: 50000,OTHER,OTHER
     Route: 048
     Dates: start: 20220603, end: 20220810
  60. POTASSIUM CHLORIDE [Concomitant]
     Active Substance: POTASSIUM CHLORIDE
     Dosage: 1200,MG,THREE TIMES DAILY
     Route: 048
     Dates: start: 20220603, end: 20220607
  61. PANTOPRAZOLE [Concomitant]
     Active Substance: PANTOPRAZOLE
     Dosage: 20,MG,DAILY
     Route: 048
     Dates: start: 20220404, end: 20220422
  62. PANTOPRAZOLE [Concomitant]
     Active Substance: PANTOPRAZOLE
     Dosage: 40 MG, QD
     Route: 048
     Dates: start: 20220519, end: 20220810
  63. MICROLAX [MACROGOL;SODIUM CITRATE;SODIUM LAURYL SULFATE;SORBIC ACID] [Concomitant]
     Dosage: ,OTHER,ONCE
     Route: 054
     Dates: start: 20220506, end: 20220506
  64. CALCIUM CHLORIDE\POTASSIUM CHLORIDE\SODIUM ACETATE\SODIUM CHLORIDE [Concomitant]
     Active Substance: CALCIUM CHLORIDE\POTASSIUM CHLORIDE\SODIUM ACETATE\SODIUM CHLORIDE
  65. OLIMEL E [Concomitant]
     Active Substance: AMINO ACIDS\DEXTROSE\ELECTROLYTES NOS\SOYBEAN OIL
     Dosage: UNK
     Route: 042
     Dates: start: 20220513, end: 20220522
  66. NICOTINE [Concomitant]
     Active Substance: NICOTINE
  67. MAGNESIUM SULFAS [Concomitant]
     Dosage: 1000,MG,DAILY
     Route: 042
     Dates: start: 20220530, end: 20220601
  68. MAGNESIUM SULFAS [Concomitant]
     Dosage: 2000,MG,DAILY
     Route: 042
     Dates: start: 20220601, end: 20220602
  69. OXYBUTYNIN [Concomitant]
     Active Substance: OXYBUTYNIN
     Dosage: 2,5,MG,DAILY
     Route: 048
     Dates: start: 20220519, end: 20220525

REACTIONS (12)
  - Cytokine release syndrome [Recovered/Resolved]
  - Encephalopathy [Recovered/Resolved]
  - Loss of consciousness [Recovered/Resolved]
  - Dysarthria [Recovered/Resolved]
  - Confusional state [Recovered/Resolved]
  - Tachycardia [Recovered/Resolved]
  - Pyrexia [Recovered/Resolved]
  - Hypoxia [Recovered/Resolved]
  - Rash [Recovered/Resolved]
  - Hypotension [Recovered/Resolved]
  - Atrial fibrillation [Recovered/Resolved]
  - Dysuria [Recovered/Resolved]

NARRATIVE: CASE EVENT DATE: 20220510
